FAERS Safety Report 14482606 (Version 12)
Quarter: 2018Q4

REPORT INFORMATION
  Report Type: Spontaneous
  Country: SK (occurrence: SK)
  Receive Date: 20180203
  Receipt Date: 20181207
  Transmission Date: 20190204
  Serious: Yes (Other)
  Sender: FDA-Public Use
  Company Number: SK-ROCHE-2067354

PATIENT
  Age: 62 Year
  Sex: Female

DRUGS (14)
  1. MABTHERA [Suspect]
     Active Substance: RITUXIMAB
     Indication: B-CELL LYMPHOMA
     Dosage: SECOND DOSE
     Route: 058
  2. MABTHERA [Suspect]
     Active Substance: RITUXIMAB
     Indication: B-CELL LYMPHOMA STAGE III
  3. BISULEPIN [Suspect]
     Active Substance: BISULEPIN
     Dosage: HALF HOUR BEFORE CHEMOTHERAPY ADMINISTRATION, UNK FREQUENCY?HALF HOURS PRIOR TO ADMINISTRATION
     Route: 042
  4. DEXAMETHASONE. [Concomitant]
     Active Substance: DEXAMETHASONE
     Indication: B-CELL LYMPHOMA
     Dosage: 24 MG, UNKNOWN FREQ. (1/2 HOURS PRIOR TO THE ADMINISTRATION)
     Route: 042
  5. MABTHERA [Suspect]
     Active Substance: RITUXIMAB
     Indication: B-CELL LYMPHOMA STAGE III
     Dosage: DOSAGE FORM: UNKNOWN, START PERIOD 3 DAYS
     Route: 058
  6. IBUPROFEN. [Suspect]
     Active Substance: IBUPROFEN
     Dosage: HALF HOUR BEFORE CHEMOTHERAPY ADMINISTRATION
     Route: 048
  7. LEVACT (BENDAMUSTINE HYDROCHLORIDE) [Suspect]
     Active Substance: BENDAMUSTINE HYDROCHLORIDE
     Indication: B-CELL LYMPHOMA
     Dosage: TWO ADMINISTRATIONS
     Route: 042
  8. BISULEPIN [Suspect]
     Active Substance: BISULEPIN
     Indication: PRODUCT USED FOR UNKNOWN INDICATION
     Dosage: HALF HOUR BEFORE CHEMOTHERAPY ADMINISTRATION, UNK FREQUENCY?HALF HOURS PRIOR TO ADMINISTRATION
     Route: 042
  9. IBUPROFEN. [Suspect]
     Active Substance: IBUPROFEN
     Indication: PRODUCT USED FOR UNKNOWN INDICATION
     Dosage: HALF HOUR PRIOR TO THE ADMINISTRATION
     Route: 048
  10. LEVACT (BENDAMUSTINE HYDROCHLORIDE) [Suspect]
     Active Substance: BENDAMUSTINE HYDROCHLORIDE
     Indication: B-CELL LYMPHOMA STAGE III
     Dosage: UNK UNK, CYCLIC
     Route: 058
  11. IBUPROFEN. [Suspect]
     Active Substance: IBUPROFEN
     Dosage: HALF HOUR BEFORE CHEMOTHERAPY ADMINISTRATION?HALF HOUR PRIOR TO THE ADMINISTRATION
     Route: 048
  12. MABTHERA [Suspect]
     Active Substance: RITUXIMAB
     Indication: B-CELL LYMPHOMA
     Dosage: HALF HOUR BEFORE CHEMOTHERAPY ADMINISTRATION
     Route: 042
  13. BISULEPIN [Suspect]
     Active Substance: BISULEPIN
     Dosage: HALF HOUR BEFORE CHEMOTHERAPY ADMINISTRATION, UNK FREQUENCY?HALF HOURS PRIOR TO ADMINISTRATION
     Route: 042
  14. DEXAMETHASONE. [Concomitant]
     Active Substance: DEXAMETHASONE
     Dosage: 24 MG, UNKNOWN FREQ. (1/2 HOURS PRIOR TO THE ADMINISTRATION)
     Route: 042

REACTIONS (5)
  - Rash [Recovered/Resolved]
  - Abdominal migraine [Recovered/Resolved]
  - Rash pruritic [Recovering/Resolving]
  - Application site pruritus [Recovered/Resolved]
  - Application site rash [Recovered/Resolved]
